FAERS Safety Report 10765840 (Version 1)
Quarter: 2015Q1

REPORT INFORMATION
  Report Type: Spontaneous
  Country: US (occurrence: None)
  Receive Date: 20150204
  Receipt Date: 20150204
  Transmission Date: 20150721
  Serious: No
  Sender: FDA-Public Use
  Company Number: None

PATIENT
  Age: 73 Year
  Sex: Female
  Weight: 85.73 kg

DRUGS (12)
  1. HYDROXYZINE [Concomitant]
     Active Substance: HYDROXYZINE\HYDROXYZINE HYDROCHLORIDE
  2. COENZYME Q10 [Concomitant]
     Active Substance: UBIDECARENONE
  3. GLYBURIDE. [Concomitant]
     Active Substance: GLYBURIDE
  4. ATORVASTATIN [Concomitant]
     Active Substance: ATORVASTATIN
  5. LOSARTAN POTASSIUM. [Concomitant]
     Active Substance: LOSARTAN POTASSIUM
  6. LORATADINE. [Concomitant]
     Active Substance: LORATADINE
  7. FLUTICASONE [Concomitant]
     Active Substance: FLUTICASONE\FLUTICASONE PROPIONATE
  8. FISH OIL [Concomitant]
     Active Substance: FISH OIL
  9. DULOXETINE 30 MG [Suspect]
     Active Substance: DULOXETINE
     Indication: OSTEOARTHRITIS
     Route: 048
     Dates: start: 20150110, end: 20150110
  10. HYDROCODONE BITARTRATE AND ACETAMINOPHEN [Concomitant]
     Active Substance: ACETAMINOPHEN\HYDROCODONE BITARTRATE
  11. VITAMIN D3 [Concomitant]
     Active Substance: CHOLECALCIFEROL
  12. SYSTANE (HYPROMELLOSE 2910 (4000 MPA.S)) [Concomitant]
     Active Substance: HYPROMELLOSE 2910 (4000 MPA.S)

REACTIONS (9)
  - Back pain [None]
  - Pain in extremity [None]
  - Musculoskeletal pain [None]
  - Neck pain [None]
  - Feeling abnormal [None]
  - Diarrhoea [None]
  - Abdominal discomfort [None]
  - Headache [None]
  - Arthralgia [None]

NARRATIVE: CASE EVENT DATE: 20150110
